FAERS Safety Report 6240313-4 (Version None)
Quarter: 2009Q2

REPORT INFORMATION
  Report Type: 
  Country: None (occurrence: None)
  Receive Date: 20090623
  Receipt Date: 20080702
  Transmission Date: 20091009
  Serious: No
  Sender: FDA-Public Use
  Company Number: US-ASTRAZENECA-2008UW13289

PATIENT
  Age: 21 Month
  Sex: Female

DRUGS (1)
  1. PULMICORT RESPULES [Suspect]
     Indication: CYSTIC FIBROSIS
     Route: 055
     Dates: start: 20080301

REACTIONS (2)
  - CYSTIC FIBROSIS [None]
  - HAEMOGLOBIN DECREASED [None]
